FAERS Safety Report 23512206 (Version 1)
Quarter: 2024Q1

REPORT INFORMATION
  Report Type: Spontaneous
  Country: US (occurrence: US)
  Receive Date: 20240212
  Receipt Date: 20240212
  Transmission Date: 20240410
  Serious: No
  Sender: FDA-Public Use
  Company Number: US-SA-SAC20240206000256

PATIENT
  Sex: Female

DRUGS (11)
  1. DUPIXENT [Suspect]
     Active Substance: DUPILUMAB
     Indication: Dermatitis atopic
     Dosage: 300 MG, QOW
     Route: 058
  2. CALCIUM CITRATE;COLECALCIFEROL;MAGNESIUM [Concomitant]
  3. IODINE TINCTURE [IODINE] [Concomitant]
  4. SELENIUM [Concomitant]
     Active Substance: SELENIUM
  5. FISH OIL [Concomitant]
     Active Substance: FISH OIL
  6. VITAMIN C [Concomitant]
     Active Substance: ASCORBIC ACID
  7. CHOLINE [Concomitant]
     Active Substance: CHOLINE
  8. COENZYME Q10 [Concomitant]
     Active Substance: DIETARY SUPPLEMENT\UBIDECARENONE
  9. CLOBETASOL [Concomitant]
     Active Substance: CLOBETASOL
  10. DESONIDE [Concomitant]
     Active Substance: DESONIDE
  11. TRIAMCINOLONE ACETONIDE [Concomitant]
     Active Substance: TRIAMCINOLONE ACETONIDE

REACTIONS (2)
  - Paraesthesia [Unknown]
  - Pruritus [Unknown]
